FAERS Safety Report 9083504 (Version 1)
Quarter: 2013Q1

REPORT INFORMATION
  Report Type: Report from Study
  Country: US (occurrence: US)
  Receive Date: 20130130
  Receipt Date: 20130130
  Transmission Date: 20140127
  Serious: Yes (Hospitalization, Other)
  Sender: FDA-Public Use
  Company Number: US-ABBOTT-12P-163-0981629-00

PATIENT
  Age: 50 Year
  Sex: Female

DRUGS (7)
  1. HUMIRA [Suspect]
     Indication: PSORIATIC ARTHROPATHY
  2. HUMIRA [Suspect]
  3. EFFEXOR XR [Concomitant]
     Indication: ANXIETY
  4. ASMANEX [Concomitant]
     Indication: ASTHMA
  5. PRO-AIR [Concomitant]
     Indication: ASTHMA
     Dosage: 1 INHALANT AS NEEDED/
  6. METHOTREXATE [Concomitant]
     Indication: PSORIATIC ARTHROPATHY
  7. LISINOPRIL [Concomitant]
     Indication: HYPERTENSION

REACTIONS (5)
  - Cholecystitis infective [Unknown]
  - Psoriatic arthropathy [Unknown]
  - Pain [Unknown]
  - Inflammation [Unknown]
  - Inappropriate schedule of drug administration [Unknown]
